FAERS Safety Report 9447992 (Version 3)
Quarter: 2013Q3

REPORT INFORMATION
  Report Type: Spontaneous
  Country: JP (occurrence: JP)
  Receive Date: 20130808
  Receipt Date: 20130826
  Transmission Date: 20140515
  Serious: Yes (Death, Hospitalization, Other)
  Sender: FDA-Public Use
  Company Number: JP-BAYER-2013-092493

PATIENT
  Age: 48 Year
  Sex: Female

DRUGS (3)
  1. NEXAVAR [Suspect]
     Indication: RENAL CELL CARCINOMA
     Dosage: UNK
     Route: 048
     Dates: start: 201110
  2. EVEROLIMUS [Suspect]
     Dosage: UNK
     Route: 048
     Dates: start: 201112
  3. INTERFERON [Concomitant]
     Dosage: UNK
     Dates: start: 201110

REACTIONS (6)
  - Death [Fatal]
  - Anaemia [None]
  - Interstitial lung disease [None]
  - Altered state of consciousness [Recovering/Resolving]
  - Respiratory disorder [None]
  - Large intestine perforation [None]
